FAERS Safety Report 23655020 (Version 1)
Quarter: 2024Q1

REPORT INFORMATION
  Report Type: Report from Study
  Country: US (occurrence: US)
  Receive Date: 20240320
  Receipt Date: 20240320
  Transmission Date: 20240409
  Serious: Yes (Death)
  Sender: FDA-Public Use
  Company Number: US-BAYER-2024A042155

PATIENT
  Age: 50 Year
  Sex: Female
  Weight: 82.993 kg

DRUGS (13)
  1. ADEMPAS [Suspect]
     Active Substance: RIOCIGUAT
     Indication: Pulmonary arterial hypertension
     Dosage: UNK
     Dates: start: 20160406
  2. ADEMPAS [Suspect]
     Active Substance: RIOCIGUAT
     Indication: Pulmonary arterial hypertension
     Dosage: 1.5 MG, TID
     Route: 048
  3. TREPROSTINIL [Concomitant]
     Active Substance: TREPROSTINIL
  4. OPSUMIT [Concomitant]
     Active Substance: MACITENTAN
  5. LASIX [Concomitant]
     Active Substance: FUROSEMIDE
  6. ZOFRAN [Concomitant]
     Active Substance: ONDANSETRON HYDROCHLORIDE
  7. GLEEVEC [Concomitant]
     Active Substance: IMATINIB MESYLATE
  8. SPIRONOLACTONE [Concomitant]
     Active Substance: SPIRONOLACTONE
  9. VENLAFAXINE [Concomitant]
     Active Substance: VENLAFAXINE HYDROCHLORIDE
  10. OXYGEN [Concomitant]
     Active Substance: OXYGEN
  11. GABAPENTIN [Concomitant]
     Active Substance: GABAPENTIN
  12. OMEPRAZOLE [Concomitant]
     Active Substance: OMEPRAZOLE
  13. BELBUCA [Concomitant]
     Active Substance: BUPRENORPHINE HYDROCHLORIDE

REACTIONS (1)
  - Death [Fatal]

NARRATIVE: CASE EVENT DATE: 20240317
